FAERS Safety Report 17514156 (Version 1)
Quarter: 2020Q1

REPORT INFORMATION
  Report Type: Spontaneous
  Country: FR (occurrence: FR)
  Receive Date: 20200306
  Receipt Date: 20200306
  Transmission Date: 20200409
  Serious: Yes (Other)
  Sender: FDA-Public Use
  Company Number: FR-AUROBINDO-AUR-APL-2020-010805

PATIENT
  Sex: Male
  Weight: 4.8 kg

DRUGS (2)
  1. SERESTA [Suspect]
     Active Substance: OXAZEPAM
     Indication: PRODUCT USED FOR UNKNOWN INDICATION
     Dosage: 150 MILLIGRAM, ONCE A DAY
     Route: 048
     Dates: start: 2018
  2. PAROXETINE. [Suspect]
     Active Substance: PAROXETINE
     Indication: PRODUCT USED FOR UNKNOWN INDICATION
     Dosage: 20 MILLIGRAM, ONCE A DAY
     Route: 048
     Dates: start: 2018

REACTIONS (4)
  - Respiratory distress [Recovered/Resolved]
  - Hypotonia [Not Recovered/Not Resolved]
  - Motor developmental delay [Not Recovered/Not Resolved]
  - Speech disorder developmental [Not Recovered/Not Resolved]

NARRATIVE: CASE EVENT DATE: 20180710
